FAERS Safety Report 8324379-3 (Version None)
Quarter: 2012Q2

REPORT INFORMATION
  Report Type: 
  Country: None (occurrence: None)
  Receive Date: 20120501
  Receipt Date: 20120425
  Transmission Date: 20120825
  Serious: Yes (Death)
  Sender: FDA-Public Use
  Company Number: US-AMGEN-USASP2012026116

PATIENT
  Age: 60 Year
  Sex: Male

DRUGS (3)
  1. NEUPOGEN [Suspect]
     Dosage: 480 UNK, UNK
     Dates: start: 20111216
  2. ARANESP [Suspect]
     Indication: PRODUCT USED FOR UNKNOWN INDICATION
     Dosage: 300 MUG, UNK
     Dates: start: 20120201
  3. NEUPOGEN [Suspect]
     Indication: PRODUCT USED FOR UNKNOWN INDICATION
     Dosage: 480 UNK, UNK
     Dates: start: 20111216

REACTIONS (1)
  - DEATH [None]
